FAERS Safety Report 6786039-X (Version None)
Quarter: 2010Q2

REPORT INFORMATION
  Report Type: 
  Country: None (occurrence: None)
  Receive Date: 20100623
  Receipt Date: 20100610
  Transmission Date: 20101027
  Serious: Yes (Other)
  Sender: FDA-Public Use
  Company Number: PHHY2010US33190

PATIENT
  Sex: Male
  Weight: 63.6 kg

DRUGS (5)
  1. ZOMETA [Suspect]
     Indication: MULTIPLE MYELOMA
     Dosage: 4 MG, UNK
     Route: 042
     Dates: end: 20061004
  2. MELPHALAN HYDROCHLORIDE [Concomitant]
     Route: 048
  3. PREDNISONE [Concomitant]
     Route: 048
  4. REVLIMID [Concomitant]
     Dosage: 5 MG, UNK
     Dates: start: 20091218, end: 20100526
  5. DEXAMETHASONE ACETATE [Concomitant]
     Dosage: 40 MG, UNK
     Dates: start: 20091218, end: 20100526

REACTIONS (3)
  - BONE DISORDER [None]
  - BONE LESION [None]
  - OSTEONECROSIS OF JAW [None]
